FAERS Safety Report 5399814-3 (Version None)
Quarter: 2007Q3

REPORT INFORMATION
  Report Type: 
  Country: None (occurrence: None)
  Receive Date: 20070730
  Receipt Date: 20070723
  Transmission Date: 20080115
  Serious: No
  Sender: FDA-Public Use
  Company Number: JP-SP-2007-02113

PATIENT
  Age: 48 Year
  Sex: Male

DRUGS (1)
  1. IMMUCYST [Suspect]
     Indication: BLADDER CANCER
     Route: 043
     Dates: start: 20070424, end: 20070529

REACTIONS (2)
  - ARTHRALGIA [None]
  - CONJUNCTIVITIS [None]
